FAERS Safety Report 9807843 (Version 1)
Quarter: 2014Q1

REPORT INFORMATION
  Report Type: Spontaneous
  Country: ES (occurrence: None)
  Receive Date: 20140108
  Receipt Date: 20140108
  Transmission Date: 20141002
  Serious: Yes (Hospitalization)
  Sender: FDA-Public Use
  Company Number: SYM-2014-14595

PATIENT
  Age: 49 Year
  Sex: Female

DRUGS (2)
  1. FLUOROURACIL [Suspect]
     Indication: ADENOCARCINOMA OF COLON
     Dates: start: 198702, end: 198708
  2. MITOMYCIN [Suspect]
     Indication: ADENOCARCINOMA OF COLON
     Dates: start: 198702, end: 198708

REACTIONS (7)
  - Off label use [None]
  - Haemolytic uraemic syndrome [None]
  - Headache [None]
  - Dyspnoea [None]
  - Blood pressure increased [None]
  - Acute pulmonary oedema [None]
  - Platelet count decreased [None]
